FAERS Safety Report 22098780 (Version 1)
Quarter: 2023Q1

REPORT INFORMATION
  Report Type: Spontaneous
  Country: US (occurrence: US)
  Receive Date: 20230315
  Receipt Date: 20230315
  Transmission Date: 20230418
  Serious: No
  Sender: FDA-Public Use
  Company Number: US-TARO PHARMACEUTICALS USA INC.-2022TAR00894

PATIENT

DRUGS (1)
  1. DESOXIMETASONE [Suspect]
     Active Substance: DESOXIMETASONE
     Indication: Dermatitis contact
     Dosage: UNK, OD, ON ARMS AND LEGS
     Route: 061
     Dates: end: 202206

REACTIONS (2)
  - Application site rash [Not Recovered/Not Resolved]
  - Condition aggravated [Unknown]
